FAERS Safety Report 6788379-7 (Version None)
Quarter: 2010Q2

REPORT INFORMATION
  Report Type: 
  Country: None (occurrence: None)
  Receive Date: 20100621
  Receipt Date: 20100610
  Transmission Date: 20101027
  Serious: Yes (Other)
  Sender: FDA-Public Use
  Company Number: AVE_01855_2010

PATIENT
  Sex: Female

DRUGS (2)
  1. CLONIDINE [Suspect]
     Indication: DRUG USE FOR UNKNOWN INDICATION
     Dosage: DF VIA 1/WEEKLY PATCH
     Dates: start: 20100601
  2. CATAPRES-TTS-1 [Concomitant]

REACTIONS (1)
  - RENAL IMPAIRMENT [None]
